FAERS Safety Report 7161469-5 (Version None)
Quarter: 2010Q4

REPORT INFORMATION
  Report Type: 
  Country: None (occurrence: None)
  Receive Date: 20101215
  Receipt Date: 20101210
  Transmission Date: 20110411
  Serious: Yes (Life-Threatening, Disabling, Other)
  Sender: FDA-Public Use
  Company Number: PHFR2010GB04373

PATIENT
  Sex: Male

DRUGS (13)
  1. CLOZARIL [Suspect]
     Dosage: UNK
     Route: 048
     Dates: start: 20090910
  2. PIRENZEPINE [Concomitant]
     Indication: SALIVARY HYPERSECRETION
     Dosage: 50 MG, TID
     Route: 048
  3. OMEPRAZOLE [Concomitant]
     Dosage: 40 MG, UNK
     Route: 048
  4. SENNA [Concomitant]
     Dosage: 2 DF, QD
  5. FOLIC ACID [Concomitant]
     Dosage: 5 MG DAILY
     Route: 048
  6. FERROUS SULFATE TAB [Concomitant]
     Dosage: 200 MG, BID
     Route: 048
  7. PARACETAMOL [Concomitant]
     Dosage: 1 G, QID
     Route: 048
  8. RAMIPRIL [Concomitant]
     Indication: HYPERTENSION
     Dosage: 2 TO 5 MG DAILY
     Route: 048
  9. SALBUTAMOL [Concomitant]
  10. OXYGEN [Concomitant]
     Dosage: UNK
  11. SIMPLE LINCTUS [Concomitant]
     Dosage: UNK
  12. DOMPERIDONE [Concomitant]
     Dosage: UNK
  13. GAVISCON [Concomitant]
     Dosage: UNK

REACTIONS (10)
  - CYANOSIS [None]
  - HYPERTENSION [None]
  - HYPOXIA [None]
  - LOWER RESPIRATORY TRACT INFECTION [None]
  - OBESITY [None]
  - OEDEMA PERIPHERAL [None]
  - OXYGEN SATURATION DECREASED [None]
  - RESPIRATORY FAILURE [None]
  - SLEEP APNOEA SYNDROME [None]
  - SOMNOLENCE [None]
